FAERS Safety Report 5106103-0 (Version None)
Quarter: 2006Q3

REPORT INFORMATION
  Report Type: 
  Country: None (occurrence: None)
  Receive Date: 20060912
  Receipt Date: 20060829
  Transmission Date: 20061208
  Serious: Yes (Hospitalization)
  Sender: FDA-Public Use
  Company Number: 2006PV020298

PATIENT
  Age: 48 Year
  Sex: Female

DRUGS (6)
  1. BYETTA [Suspect]
     Indication: DIABETES MELLITUS NON-INSULIN-DEPENDENT
     Dosage: SEE IMAGES
     Route: 058
     Dates: start: 20060329, end: 20060601
  2. BYETTA [Suspect]
     Indication: DIABETES MELLITUS NON-INSULIN-DEPENDENT
     Dosage: SEE IMAGES
     Route: 058
     Dates: start: 20060601
  3. GLUCOTROL XL [Concomitant]
  4. METFORMIN [Concomitant]
  5. LANTUS [Concomitant]
  6. NOVOLOG [Concomitant]

REACTIONS (7)
  - BLOOD GLUCOSE INCREASED [None]
  - DECREASED APPETITE [None]
  - FURUNCLE [None]
  - GASTROOESOPHAGEAL REFLUX DISEASE [None]
  - INCREASED APPETITE [None]
  - NAUSEA [None]
  - WEIGHT DECREASED [None]
